FAERS Safety Report 4949990-9 (Version None)
Quarter: 2006Q1

REPORT INFORMATION
  Report Type: 
  Country: None (occurrence: None)
  Receive Date: 20060315
  Receipt Date: 20060308
  Transmission Date: 20060701
  Serious: Yes (Hospitalization)
  Sender: FDA-Public Use
  Company Number: 2006-00901

PATIENT
  Age: 64 Year
  Sex: Female

DRUGS (3)
  1. OXYTROL [Suspect]
     Dosage: SEE IMAGE
     Route: 062
     Dates: start: 20020101, end: 20050801
  2. OXYTROL [Suspect]
     Dosage: SEE IMAGE
     Route: 062
     Dates: start: 20050801
  3. BCG VACCINE (BCG VACCINE) [Concomitant]

REACTIONS (4)
  - APPLICATION SITE DERMATITIS [None]
  - BLADDER CANCER [None]
  - CARCINOMA IN SITU [None]
  - PHARMACEUTICAL PRODUCT COMPLAINT [None]
